FAERS Safety Report 16148931 (Version 3)
Quarter: 2019Q2

REPORT INFORMATION
  Report Type: Report from Study
  Country: JP (occurrence: JP)
  Receive Date: 20190402
  Receipt Date: 20190612
  Transmission Date: 20190711
  Serious: Yes (Hospitalization)
  Sender: FDA-Public Use
  Company Number: JP-AMGEN-JPNSP2018038487

PATIENT
  Age: 41 Year
  Sex: Female
  Weight: 88.2 kg

DRUGS (14)
  1. EVOLOCUMAB [Suspect]
     Active Substance: EVOLOCUMAB
     Indication: TYPE IIA HYPERLIPIDAEMIA
     Dosage: 140 MILLIGRAM, Q2WK
     Route: 058
     Dates: start: 20180129, end: 20180319
  2. EVOLOCUMAB [Suspect]
     Active Substance: EVOLOCUMAB
     Dosage: 140 MILLIGRAM
     Route: 058
     Dates: start: 20181012
  3. ROSUVASTATIN. [Suspect]
     Active Substance: ROSUVASTATIN
     Indication: PRODUCT USED FOR UNKNOWN INDICATION
     Dosage: 5 MILLIGRAM
     Route: 065
  4. EZETIMIBE. [Concomitant]
     Active Substance: EZETIMIBE
     Dosage: 10 MILLIGRAM
  5. ALOGLIPTIN. [Concomitant]
     Active Substance: ALOGLIPTIN
     Indication: DIABETES MELLITUS
     Dosage: 25 MILLIGRAM
  6. ZETIA [Suspect]
     Active Substance: EZETIMIBE
     Indication: PRODUCT USED FOR UNKNOWN INDICATION
     Dosage: 10 MILLIGRAM, QD
     Route: 048
     Dates: start: 20161003, end: 20180323
  7. ROSUVASTATIN. [Suspect]
     Active Substance: ROSUVASTATIN
     Dosage: 10 MILLIGRAM
     Route: 048
  8. CRESTOR [Concomitant]
     Active Substance: ROSUVASTATIN CALCIUM
     Dosage: 20 MILLIGRAM, QD
     Route: 048
     Dates: start: 20161003, end: 20180323
  9. COLESTIMIDE [Concomitant]
     Active Substance: COLESTILAN CHLORIDE
     Dosage: 8 DF, UNK (500)
  10. ROSUVASTATIN. [Suspect]
     Active Substance: ROSUVASTATIN
     Dosage: 20 MILLIGRAM
     Route: 065
  11. ZETIA [Suspect]
     Active Substance: EZETIMIBE
     Dosage: UNK
     Route: 048
  12. ETHYL ICOSAPENTATE [Concomitant]
     Active Substance: ICOSAPENT ETHYL
     Dosage: 2 PACKETS (900)
  13. METFORMIN [Concomitant]
     Active Substance: METFORMIN HYDROCHLORIDE
     Dosage: 1000 MILLIGRAM, BID
     Route: 048
     Dates: start: 20161128
  14. INSULIN [Concomitant]
     Active Substance: INSULIN NOS
     Dosage: UNK
     Dates: start: 201602

REACTIONS (4)
  - Premature labour [Recovered/Resolved]
  - Cervical incompetence [Recovered/Resolved]
  - Maternal exposure during pregnancy [Unknown]
  - Low density lipoprotein increased [Unknown]

NARRATIVE: CASE EVENT DATE: 2018
